FAERS Safety Report 8537422-3 (Version None)
Quarter: 2012Q3

REPORT INFORMATION
  Report Type: 
  Country: None (occurrence: None)
  Receive Date: 20120725
  Receipt Date: 20120718
  Transmission Date: 20120928
  Serious: Yes (Other)
  Sender: FDA-Public Use
  Company Number: JP-VERTEX PHARMACEUTICALS INC.-AE-2012-009871

PATIENT
  Age: 58 Year
  Sex: Female

DRUGS (11)
  1. REBETOL [Concomitant]
     Route: 048
     Dates: start: 20120605
  2. REBETOL [Concomitant]
     Indication: HEPATITIS C
     Route: 048
     Dates: start: 20120514, end: 20120527
  3. GOODMIN [Concomitant]
     Route: 048
     Dates: start: 20120612
  4. DIAZEPAM [Concomitant]
     Route: 048
     Dates: end: 20120528
  5. MUCOSTA [Concomitant]
     Route: 048
     Dates: start: 20120514, end: 20120604
  6. URDENACIN [Concomitant]
     Route: 048
     Dates: end: 20120514
  7. TELAVIC (TELAPREVIR) [Suspect]
     Indication: HEPATITIS C
     Route: 048
     Dates: start: 20120514
  8. REBETOL [Concomitant]
     Route: 048
     Dates: start: 20120528, end: 20120604
  9. OLMESARTAN MEDOXOMIL [Concomitant]
     Route: 048
     Dates: end: 20120527
  10. LOXOPROFEN [Concomitant]
     Route: 048
     Dates: start: 20120514, end: 20120604
  11. PEGINTERFERON ALFA-2B [Concomitant]
     Indication: HEPATITIS C
     Route: 058
     Dates: start: 20120514

REACTIONS (1)
  - RETINOPATHY [None]
